FAERS Safety Report 20351039 (Version 3)
Quarter: 2022Q1

REPORT INFORMATION
  Report Type: Spontaneous
  Country: LB (occurrence: LB)
  Receive Date: 20220119
  Receipt Date: 20220217
  Transmission Date: 20220423
  Serious: Yes (Other)
  Sender: FDA-Public Use
  Company Number: LB-NOVARTISPH-NVSC2021LB281757

PATIENT
  Sex: Male

DRUGS (4)
  1. BEOVU [Suspect]
     Active Substance: BROLUCIZUMAB-DBLL
     Indication: Dry age-related macular degeneration
     Dosage: UNK, Q3MO, LEFT EYE
     Route: 031
     Dates: start: 202104
  2. BEOVU [Suspect]
     Active Substance: BROLUCIZUMAB-DBLL
     Dosage: UNK, Q3MO, RIGHT EYE
     Route: 031
     Dates: start: 202106
  3. BEOVU [Suspect]
     Active Substance: BROLUCIZUMAB-DBLL
     Dosage: UNK, Q3MO, LEFT EYE
     Route: 031
     Dates: start: 202107
  4. BEOVU [Suspect]
     Active Substance: BROLUCIZUMAB-DBLL
     Dosage: UNK, Q3MO, LEFT EYE
     Route: 031
     Dates: start: 20211028

REACTIONS (8)
  - Central vision loss [Not Recovered/Not Resolved]
  - Blindness transient [Recovered/Resolved]
  - Retinal haemorrhage [Recovered/Resolved]
  - Vision blurred [Unknown]
  - Visual field defect [Unknown]
  - Visual acuity reduced [Unknown]
  - Vitreous floaters [Unknown]
  - Product use in unapproved indication [Unknown]

NARRATIVE: CASE EVENT DATE: 20211028
